FAERS Safety Report 6772266-4 (Version None)
Quarter: 2010Q2

REPORT INFORMATION
  Report Type: 
  Country: None (occurrence: None)
  Receive Date: 20100616
  Receipt Date: 20100208
  Transmission Date: 20101027
  Serious: No
  Sender: FDA-Public Use
  Company Number: US-ASTRAZENECA-2010SE05612

PATIENT
  Age: 49 Year
  Sex: Female

DRUGS (8)
  1. PULMICORT FLEXHALER [Suspect]
     Indication: ASTHMA
     Dosage: 180 MCG DAILY, ONE PUFF A DAY
     Route: 055
  2. PULMICORT FLEXHALER [Suspect]
     Dosage: 360 MCG DAILY, 2 PUFFS TWICE A DAY
     Route: 055
  3. THYROID TAB [Concomitant]
  4. ALBUTEROL [Concomitant]
  5. MIRALAX [Concomitant]
  6. VITAMINS [Concomitant]
  7. SUDAFED 12 HOUR [Concomitant]
  8. PREVACID OTC [Concomitant]

REACTIONS (3)
  - ASTHMA [None]
  - DRUG ADMINISTRATION ERROR [None]
  - GASTROOESOPHAGEAL REFLUX DISEASE [None]
